FAERS Safety Report 6104688-9 (Version None)
Quarter: 2009Q1

REPORT INFORMATION
  Report Type: 
  Country: None (occurrence: None)
  Receive Date: 20090302
  Receipt Date: 20090123
  Transmission Date: 20090719
  Serious: Yes (Death)
  Sender: FDA-Public Use
  Company Number: 2008AL006569

PATIENT
  Age: 82 Year
  Sex: Male
  Weight: 88.905 kg

DRUGS (9)
  1. DIGOXIN [Suspect]
     Dosage: 0.125MG, UNK, PO
     Route: 048
  2. METOPROLOL TARTRATE [Concomitant]
  3. LISINOPRIL [Concomitant]
  4. SOTONOL [Concomitant]
  5. ALLOPURINOL [Concomitant]
  6. WARFARIN SODIUM [Concomitant]
  7. FUROSEMIDE [Concomitant]
  8. FOLATE [Concomitant]
  9. DIAZEPAM [Concomitant]

REACTIONS (1)
  - SUDDEN DEATH [None]
